FAERS Safety Report 9528463 (Version 1)
Quarter: 2013Q3

REPORT INFORMATION
  Report Type: Spontaneous
  Country: JP (occurrence: JP)
  Receive Date: 20130917
  Receipt Date: 20130917
  Transmission Date: 20140515
  Serious: Yes (Life-Threatening)
  Sender: FDA-Public Use
  Company Number: JP-ASTRAZENECA-2013SE69127

PATIENT
  Age: 30 Year
  Sex: Female

DRUGS (1)
  1. ANAPEINE [Suspect]
     Indication: POSTOPERATIVE ANALGESIA

REACTIONS (3)
  - Toxicity to various agents [Recovered/Resolved]
  - Depressed level of consciousness [Recovered/Resolved]
  - Grand mal convulsion [Recovered/Resolved]
